FAERS Safety Report 26057459 (Version 2)
Quarter: 2025Q4

REPORT INFORMATION
  Report Type: Spontaneous
  Country: JP (occurrence: JP)
  Receive Date: 20251118
  Receipt Date: 20251209
  Transmission Date: 20260117
  Serious: Yes (Death, Other)
  Sender: ROCHE
  Company Number: JP-CHUGAI-2025036780

PATIENT
  Age: 74 Year
  Sex: Male
  Weight: 59.5 kg

DRUGS (7)
  1. TECENTRIQ [Suspect]
     Active Substance: ATEZOLIZUMAB
     Indication: Hepatocellular carcinoma
     Dosage: 1200 MILLIGRAM, ONCE/3WEEKS
     Route: 041
     Dates: start: 20250911, end: 20251002
  2. AVASTIN [Suspect]
     Active Substance: BEVACIZUMAB
     Indication: Hepatocellular carcinoma
     Dosage: 800 MILLIGRAM, ONCE/3WEEKS
     Route: 041
     Dates: start: 20250911, end: 20251002
  3. AMLODIPINE BESYLATE [Concomitant]
     Active Substance: AMLODIPINE BESYLATE
  4. RABEPRAZOLE SODIUM [Concomitant]
     Active Substance: RABEPRAZOLE SODIUM
  5. LIVACT [ISOLEUCINE;LEUCINE;VALINE] [Concomitant]
  6. CELECOXIB [Concomitant]
     Active Substance: CELECOXIB
  7. PREGABALIN [Concomitant]
     Active Substance: PREGABALIN

REACTIONS (3)
  - Cardio-respiratory arrest [Fatal]
  - Myocardial infarction [Fatal]
  - Coronary artery occlusion [Unknown]

NARRATIVE: CASE EVENT DATE: 20251023
